FAERS Safety Report 13546925 (Version 3)
Quarter: 2017Q2

REPORT INFORMATION
  Report Type: Spontaneous
  Country: SN (occurrence: SN)
  Receive Date: 20170515
  Receipt Date: 20170522
  Transmission Date: 20170830
  Serious: Yes (Death)
  Sender: FDA-Public Use
  Company Number: SN-PFIZER INC-2017129705

PATIENT
  Age: 40 Year
  Sex: Female

DRUGS (1)
  1. SUTENT [Suspect]
     Active Substance: SUNITINIB MALATE
     Indication: RENAL CELL CARCINOMA
     Dosage: 50 MG, 1X/DAY FOR 4 WEEKS WITH A PAUSE OF 2 WEEKS BETWEEN EACH CURE
     Route: 048
     Dates: start: 20160603, end: 20170323

REACTIONS (2)
  - Death [Fatal]
  - Toothache [Unknown]

NARRATIVE: CASE EVENT DATE: 20170318
